FAERS Safety Report 4687044-X (Version None)
Quarter: 2005Q2

REPORT INFORMATION
  Report Type: 
  Country: None (occurrence: None)
  Receive Date: 20050608
  Receipt Date: 20050530
  Transmission Date: 20051028
  Serious: No
  Sender: FDA-Public Use
  Company Number: 2005-04-1289

PATIENT
  Age: 41 Year
  Sex: Male
  Weight: 74 kg

DRUGS (5)
  1. CLARITIN [Suspect]
     Indication: RHINITIS ALLERGIC
     Dosage: 10-20 MG ORAL
     Route: 048
     Dates: start: 20041225, end: 20050408
  2. URINORM [Concomitant]
  3. GRANDAXIN [Concomitant]
  4. MERISLON [Concomitant]
  5. KENACORT-A [Concomitant]

REACTIONS (7)
  - ALANINE AMINOTRANSFERASE INCREASED [None]
  - GAMMA-GLUTAMYLTRANSFERASE INCREASED [None]
  - GASTROENTERITIS [None]
  - LYMPHOCYTE COUNT INCREASED [None]
  - NEUTROPHIL COUNT DECREASED [None]
  - RHINITIS ALLERGIC [None]
  - WHITE BLOOD CELL COUNT DECREASED [None]
